FAERS Safety Report 7226460-9 (Version None)
Quarter: 2011Q1

REPORT INFORMATION
  Report Type: 
  Country: None (occurrence: None)
  Receive Date: 20110114
  Receipt Date: 20101206
  Transmission Date: 20110831
  Serious: Yes (Hospitalization, Other)
  Sender: FDA-Public Use
  Company Number: BE-JNJFOC-20101203150

PATIENT
  Age: 44 Year
  Sex: Female
  Weight: 48 kg

DRUGS (2)
  1. NAPROXEN [Suspect]
     Indication: ANKYLOSING SPONDYLITIS
     Route: 048
  2. INFLIXIMAB, RECOMBINANT [Suspect]
     Indication: ANKYLOSING SPONDYLITIS
     Route: 042

REACTIONS (1)
  - BREAST CANCER [None]
